FAERS Safety Report 6387442-2 (Version None)
Quarter: 2009Q3

REPORT INFORMATION
  Report Type: 
  Country: None (occurrence: None)
  Receive Date: 20090930
  Receipt Date: 20090921
  Transmission Date: 20100115
  Serious: Yes (Hospitalization)
  Sender: FDA-Public Use
  Company Number: 2009SP002462

PATIENT
  Age: 60 Year
  Sex: Male
  Weight: 80 kg

DRUGS (5)
  1. BROVANA [Suspect]
     Indication: CHRONIC OBSTRUCTIVE PULMONARY DISEASE
     Dosage: 15 UG/2ML;BID;INHALATION ; 15 UG/2ML;BID;INHALATION
     Route: 055
     Dates: start: 20090201, end: 20090807
  2. BROVANA [Suspect]
     Indication: CHRONIC OBSTRUCTIVE PULMONARY DISEASE
     Dosage: 15 UG/2ML;BID;INHALATION ; 15 UG/2ML;BID;INHALATION
     Route: 055
     Dates: start: 20090812, end: 20090920
  3. ALVESCO INHALATION [Concomitant]
  4. AEROSOL [Concomitant]
  5. PREV MEDS [Concomitant]

REACTIONS (6)
  - DIVERTICULUM [None]
  - DYSPNOEA [None]
  - ESCHERICHIA BACTERAEMIA [None]
  - HEADACHE [None]
  - INTERSTITIAL LUNG DISEASE [None]
  - PNEUMONIA [None]
